FAERS Safety Report 8419479-3 (Version None)
Quarter: 2012Q2

REPORT INFORMATION
  Report Type: 
  Country: None (occurrence: None)
  Receive Date: 20120607
  Receipt Date: 20120529
  Transmission Date: 20120825
  Serious: Yes (Other)
  Sender: FDA-Public Use
  Company Number: JP-JNJFOC-20120601026

PATIENT
  Age: 64 Year
  Sex: Female

DRUGS (5)
  1. DORIPENEM MONOHYDRATE [Suspect]
     Indication: SKIN INFECTION
     Route: 041
     Dates: start: 20120516, end: 20120527
  2. VANCOMYCIN [Suspect]
     Route: 041
     Dates: start: 20120409
  3. VANCOMYCIN [Suspect]
     Indication: SKIN INFECTION
     Route: 041
     Dates: start: 20120505
  4. VANCOMYCIN [Suspect]
     Route: 041
     Dates: start: 20120427
  5. VANCOMYCIN [Suspect]
     Route: 041
     Dates: start: 20120509, end: 20120527

REACTIONS (1)
  - PANCYTOPENIA [None]
